FAERS Safety Report 10766033 (Version 2)
Quarter: 2016Q2

REPORT INFORMATION
  Report Type: Spontaneous
  Country: US (occurrence: US)
  Receive Date: 20150205
  Receipt Date: 20160630
  Transmission Date: 20160815
  Serious: No
  Sender: FDA-Public Use
  Company Number: US-ELI_LILLY_AND_COMPANY-US201409008170

PATIENT
  Age: 13 Year
  Sex: Male

DRUGS (4)
  1. HUMATROPE [Suspect]
     Active Substance: SOMATROPIN
     Dosage: UNK UNK, QD
     Route: 058
     Dates: start: 201412
  2. HUMATROPE [Suspect]
     Active Substance: SOMATROPIN
     Indication: GROWTH HORMONE DEFICIENCY
     Dosage: UNK UNK, QD
     Route: 058
     Dates: start: 20140907, end: 201412
  3. HUMATROPE [Suspect]
     Active Substance: SOMATROPIN
     Dosage: UNK UNK, QD
     Route: 058
  4. HUMATROPE [Suspect]
     Active Substance: SOMATROPIN
     Dosage: UNK, QD
     Route: 058

REACTIONS (5)
  - Injection site pain [Unknown]
  - Injection site bruising [Unknown]
  - Injection site vesicles [Recovered/Resolved]
  - Drug dose omission [Unknown]
  - Drug dose omission [Unknown]

NARRATIVE: CASE EVENT DATE: 20160609
